FAERS Safety Report 12721644 (Version 1)
Quarter: 2016Q3

REPORT INFORMATION
  Report Type: Spontaneous
  Country: CA (occurrence: CA)
  Receive Date: 20160907
  Receipt Date: 20160907
  Transmission Date: 20161109
  Serious: Yes (Other)
  Sender: FDA-Public Use
  Company Number: CA-JNJFOC-20160827499

PATIENT

DRUGS (1)
  1. REOPRO [Suspect]
     Active Substance: ABCIXIMAB
     Indication: CEREBRAL ENDOVASCULAR ANEURYSM REPAIR
     Route: 013

REACTIONS (7)
  - Adverse event [Unknown]
  - Aneurysm recanalisation [Unknown]
  - Off label use [Unknown]
  - Subarachnoid haemorrhage [Unknown]
  - Product use issue [Unknown]
  - Thrombosis [Unknown]
  - Incorrect route of drug administration [Unknown]
